FAERS Safety Report 8643193 (Version 4)
Quarter: 2013Q1

REPORT INFORMATION
  Report Type: Report from Study
  Country: PL (occurrence: PL)
  Receive Date: 20120629
  Receipt Date: 20130304
  Transmission Date: 20140127
  Serious: Yes (Life-Threatening, Hospitalization, Other)
  Sender: FDA-Public Use
  Company Number: PL-ASTRAZENECA-2012SE42662

PATIENT
  Age: 66 Year
  Sex: Female

DRUGS (16)
  1. VANDETANIB [Suspect]
     Indication: THYROID CANCER
     Route: 048
     Dates: start: 20110816, end: 20110902
  2. VANDETANIB [Suspect]
     Indication: THYROID CANCER
     Route: 048
     Dates: start: 20110903, end: 20120611
  3. VANDETANIB [Suspect]
     Indication: THYROID CANCER
     Route: 048
     Dates: start: 20120723, end: 20121120
  4. PAMIFOS [Suspect]
     Indication: METASTASES TO SPINE
     Dosage: AS REQUIRED
     Route: 042
     Dates: start: 20111101, end: 20120612
  5. PAMIFOS [Suspect]
     Indication: METASTASES TO SPINE
     Route: 042
     Dates: start: 20120612, end: 20120612
  6. ALFADIOL [Suspect]
     Indication: HYPOPARATHYROIDISM
     Route: 048
     Dates: end: 20120612
  7. ALFADIOL [Suspect]
     Indication: HYPOPARATHYROIDISM
     Dosage: DOSE REDUCED
     Route: 048
     Dates: start: 20120816
  8. LOPERAMIDE [Concomitant]
     Indication: DIARRHOEA
     Route: 048
  9. MAGNE B6 [Concomitant]
     Indication: MINERAL SUPPLEMENTATION
     Route: 048
  10. PRAMOLAN [Concomitant]
     Indication: DEPRESSION
     Route: 048
     Dates: start: 20110806
  11. CALPEROS [Concomitant]
     Indication: MINERAL SUPPLEMENTATION
     Route: 048
     Dates: start: 20110903, end: 20111116
  12. CALPEROS [Concomitant]
     Indication: MINERAL SUPPLEMENTATION
     Route: 048
     Dates: start: 20111117, end: 20120612
  13. KALDYUM [Concomitant]
     Indication: MINERAL SUPPLEMENTATION
     Route: 048
     Dates: start: 20110903
  14. CONTROLOC [Concomitant]
     Indication: GASTRITIS
     Route: 048
     Dates: start: 20120214
  15. EUTHYROX N [Concomitant]
     Indication: HYPOTHYROIDISM
     Route: 048
     Dates: end: 20120516
  16. EUTHYROX N [Concomitant]
     Indication: HYPOTHYROIDISM
     Route: 048
     Dates: start: 20120517

REACTIONS (4)
  - Renal failure [Recovered/Resolved]
  - Hypercalcaemia [Recovered/Resolved]
  - Hypotension [Recovered/Resolved]
  - Dehydration [Recovered/Resolved]
